FAERS Safety Report 20390468 (Version 1)
Quarter: 2022Q1

REPORT INFORMATION
  Report Type: Spontaneous
  Country: CA (occurrence: CA)
  Receive Date: 20220128
  Receipt Date: 20220128
  Transmission Date: 20220423
  Serious: Yes (Hospitalization, Other)
  Sender: FDA-Public Use
  Company Number: None

PATIENT
  Age: 68 Year
  Sex: Male

DRUGS (6)
  1. LEVETIRACETAM [Suspect]
     Active Substance: LEVETIRACETAM
     Indication: Tonic convulsion
     Dosage: 2 EVERY 1 DAYS
  2. CARBIDOPA [Suspect]
     Active Substance: CARBIDOPA
     Indication: Gastrointestinal disorder
  3. OXITRIPTAN [Suspect]
     Active Substance: OXITRIPTAN
     Indication: Tonic convulsion
     Dosage: 3 EVERY 1 DAYS
  4. PHENYTOIN [Suspect]
     Active Substance: PHENYTOIN
     Indication: Tonic convulsion
     Dosage: 1 EVERY 1 DAYS
  5. VALPROIC ACID [Suspect]
     Active Substance: VALPROIC ACID
     Indication: Tonic convulsion
     Dosage: 4 EVERY 1 DAYS
  6. CLONAZEPAM [Concomitant]
     Active Substance: CLONAZEPAM
     Indication: Product used for unknown indication
     Dosage: 2 EVERY 1 DAYS

REACTIONS (3)
  - Myoclonus [Unknown]
  - Serotonin syndrome [Unknown]
  - Somnolence [Unknown]
